FAERS Safety Report 5757640-7 (Version None)
Quarter: 2008Q2

REPORT INFORMATION
  Report Type: 
  Country: None (occurrence: None)
  Receive Date: 20080603
  Receipt Date: 20080527
  Transmission Date: 20081010
  Serious: Yes (Life-Threatening)
  Sender: FDA-Public Use
  Company Number: US-GENENTECH-261449

PATIENT
  Sex: Male
  Weight: 88.889 kg

DRUGS (2)
  1. BEVACIZUMAB [Suspect]
     Indication: RENAL CANCER METASTATIC
     Dosage: 10 MG/KG, Q2W
     Dates: start: 20070227
  2. RAD001 [Suspect]
     Indication: RENAL CANCER METASTATIC
     Dosage: 5 MG, Q2W
     Dates: start: 20070227

REACTIONS (1)
  - NEPHROTIC SYNDROME [None]
